FAERS Safety Report 5102790-1 (Version None)
Quarter: 2006Q4

REPORT INFORMATION
  Report Type: 
  Country: None (occurrence: None)
  Receive Date: 20060907
  Receipt Date: 20060821
  Transmission Date: 20070319
  Serious: Yes (Other)
  Sender: FDA-Public Use
  Company Number: BR200608006338

PATIENT
  Age: 54 Year
  Sex: Female

DRUGS (5)
  1. GEMCITABINE [Suspect]
     Indication: TRANSITIONAL CELL CARCINOMA
     Dosage: 1000 + 800 MG/M2, OTHER, INTRAVENOUS - SEE IMAGE
     Route: 042
     Dates: start: 20030701, end: 20031101
  2. CISPLATINE (CISPLATIN UNKNOWN FORMULATION) [Concomitant]
  3. PACLITAXEL [Concomitant]
  4. GRANULOCYTE COLONY STIMULATING FACTOR (GRANULOCYTE COLONY STIMULATING [Concomitant]
  5. ERYTHROPOIETIN (ERYTHROPOIETIN) [Concomitant]

REACTIONS (6)
  - ABDOMINAL PAIN [None]
  - CATHETER RELATED INFECTION [None]
  - FEBRILE NEUTROPENIA [None]
  - NEPHRITIS INTERSTITIAL [None]
  - NEURILEMMOMA BENIGN [None]
  - RENAL FAILURE ACUTE [None]
